FAERS Safety Report 4341015-1 (Version None)
Quarter: 2004Q2

REPORT INFORMATION
  Report Type: 
  Country: None (occurrence: None)
  Receive Date: 20040413
  Receipt Date: 20040331
  Transmission Date: 20050107
  Serious: Yes (Hospitalization)
  Sender: FDA-Public Use
  Company Number: 2004021837

PATIENT
  Sex: Female

DRUGS (3)
  1. GEODON [Suspect]
     Indication: BIPOLAR DISORDER
     Dosage: 60 MG (DAILY), ORAL
     Route: 048
  2. PAROXETINE HCL [Suspect]
     Indication: ILL-DEFINED DISORDER
     Dosage: ORAL
     Route: 048
  3. OTHER NUTRIENTS (OTHER NUTRIENTS) [Suspect]
     Indication: ILL-DEFINED DISORDER

REACTIONS (2)
  - HYPERSENSITIVITY [None]
  - OEDEMA [None]
